FAERS Safety Report 22354629 (Version 2)
Quarter: 2023Q2

REPORT INFORMATION
  Report Type: Spontaneous
  Country: CA (occurrence: None)
  Receive Date: 20230523
  Receipt Date: 20230601
  Transmission Date: 20230722
  Serious: Yes (Hospitalization)
  Sender: FDA-Public Use
  Company Number: CA-ROCHE-3352842

PATIENT
  Sex: Male

DRUGS (8)
  1. RITUXIMAB [Suspect]
     Active Substance: RITUXIMAB
     Indication: Thrombotic thrombocytopenic purpura
     Route: 065
  2. RITUXIMAB [Suspect]
     Active Substance: RITUXIMAB
     Indication: Drug ineffective
  3. RITUXIMAB [Suspect]
     Active Substance: RITUXIMAB
     Indication: Drug ineffective
     Route: 042
  4. RITUXIMAB [Suspect]
     Active Substance: RITUXIMAB
     Indication: Thrombotic thrombocytopenic purpura
  5. CAPLACIZUMAB [Concomitant]
     Active Substance: CAPLACIZUMAB
     Route: 065
  6. HEPARIN [Concomitant]
     Active Substance: HEPARIN SODIUM
     Route: 042
  7. ELASOMERAN [Concomitant]
     Active Substance: ELASOMERAN
     Indication: COVID-19
  8. TOZINAMERAN [Concomitant]
     Active Substance: TOZINAMERAN
     Indication: COVID-19

REACTIONS (4)
  - Bronchopulmonary aspergillosis [Recovered/Resolved]
  - COVID-19 [Recovered/Resolved]
  - Humoral immune defect [Recovered/Resolved]
  - Infection [Recovered/Resolved]
